FAERS Safety Report 24713111 (Version 2)
Quarter: 2024Q4

REPORT INFORMATION
  Report Type: Spontaneous
  Country: SK (occurrence: SK)
  Receive Date: 20241209
  Receipt Date: 20241227
  Transmission Date: 20250114
  Serious: Yes (Other)
  Sender: ELI LILLY AND COMPANY
  Company Number: SK-ELI_LILLY_AND_COMPANY-SK202411019407

PATIENT
  Age: 57 Year
  Sex: Male
  Weight: 175 kg

DRUGS (9)
  1. MOUNJARO [Suspect]
     Active Substance: TIRZEPATIDE
     Indication: Weight control
     Dosage: 2.5 MG, WEEKLY (1/W)
     Route: 058
     Dates: start: 202409
  2. MOUNJARO [Suspect]
     Active Substance: TIRZEPATIDE
     Indication: Type 2 diabetes mellitus
     Dosage: 5 MG, WEEKLY (1/W)
     Route: 058
  3. MOUNJARO [Suspect]
     Active Substance: TIRZEPATIDE
     Dosage: 10 MG, WEEKLY (1/W) (TWO 5MG DOSES TO ACHIEVE THE DOSE OF 10MG)
     Route: 058
  4. MOUNJARO [Suspect]
     Active Substance: TIRZEPATIDE
     Indication: Weight control
     Dosage: 10 MG, WEEKLY (1/W)
     Route: 058
  5. MOUNJARO [Suspect]
     Active Substance: TIRZEPATIDE
     Indication: Type 2 diabetes mellitus
  6. TOUJEO [Concomitant]
     Active Substance: INSULIN GLARGINE
     Indication: Type 2 diabetes mellitus
     Dosage: UNK (50IU IN THE EVENING)
     Dates: start: 20241217
  7. METFORMIN HYDROCHLORIDE [Concomitant]
     Active Substance: METFORMIN HYDROCHLORIDE
     Indication: Type 2 diabetes mellitus
     Dosage: 1000 MG, BID
  8. ASPIRIN [Concomitant]
     Active Substance: ASPIRIN
     Indication: Product used for unknown indication
     Dosage: 100 MG, DAILY
  9. FENOFIBRATE [Concomitant]
     Active Substance: FENOFIBRATE
     Indication: Product used for unknown indication
     Dosage: 145 MG, DAILY

REACTIONS (11)
  - Overdose [Recovered/Resolved]
  - Off label use [Unknown]
  - Blood glucose increased [Unknown]
  - Blood creatinine decreased [Unknown]
  - Blood cholesterol decreased [Unknown]
  - Blood triglycerides increased [Unknown]
  - Blood alkaline phosphatase decreased [Unknown]
  - Glycosylated haemoglobin increased [Unknown]
  - Alanine aminotransferase increased [Unknown]
  - Blood pressure increased [Unknown]
  - Body mass index increased [Unknown]

NARRATIVE: CASE EVENT DATE: 20241120
